FAERS Safety Report 6943008-4 (Version None)
Quarter: 2010Q3

REPORT INFORMATION
  Report Type: 
  Country: None (occurrence: None)
  Receive Date: 20100826
  Receipt Date: 20100817
  Transmission Date: 20110219
  Serious: Yes (Hospitalization, Other)
  Sender: FDA-Public Use
  Company Number: US-MERCK-1007USA00769

PATIENT
  Age: 66 Year
  Sex: Female
  Weight: 64 kg

DRUGS (3)
  1. FOSAMAX [Suspect]
     Indication: OSTEOPOROSIS
     Route: 048
     Dates: start: 20050101, end: 20070101
  2. FOSAMAX [Suspect]
     Indication: BONE DENSITY ABNORMAL
     Route: 048
     Dates: start: 20050101, end: 20070101
  3. EVISTA [Suspect]
     Indication: OSTEOPOROSIS
     Route: 065
     Dates: start: 20050101

REACTIONS (1)
  - ATRIAL FIBRILLATION [None]
